FAERS Safety Report 8113324-1 (Version None)
Quarter: 2012Q1

REPORT INFORMATION
  Report Type: 
  Country: None (occurrence: None)
  Receive Date: 20120203
  Receipt Date: 20120126
  Transmission Date: 20120608
  Serious: Yes (Death, Hospitalization, Other)
  Sender: FDA-Public Use
  Company Number: US-BAXTER-2012BH002577

PATIENT
  Sex: Male

DRUGS (2)
  1. DIANEAL [Suspect]
     Indication: PERITONEAL DIALYSIS
     Route: 033
     Dates: start: 20120101, end: 20120121
  2. EXTRANEAL [Suspect]
     Indication: PERITONEAL DIALYSIS
     Route: 033
     Dates: start: 20120101, end: 20120121

REACTIONS (6)
  - MYOCARDIAL INFARCTION [None]
  - INTESTINAL PERFORATION [None]
  - HYPOTENSION [None]
  - ABDOMINAL PAIN [None]
  - CHEST PAIN [None]
  - LOSS OF CONSCIOUSNESS [None]
